FAERS Safety Report 20222452 (Version 2)
Quarter: 2022Q2

REPORT INFORMATION
  Report Type: Spontaneous
  Country: JP (occurrence: JP)
  Receive Date: 20211223
  Receipt Date: 20220528
  Transmission Date: 20220721
  Serious: Yes (Life-Threatening, Hospitalization, Disabling, Other)
  Sender: FDA-Public Use
  Company Number: JP-BAYER-2021A269815

PATIENT
  Age: 84 Year
  Sex: Female

DRUGS (4)
  1. XARELTO [Suspect]
     Active Substance: RIVAROXABAN
     Indication: Atrial fibrillation
     Dosage: 10 MG, QD
     Route: 048
     Dates: start: 20170523
  2. LANSOPRAZOLE [Concomitant]
     Active Substance: LANSOPRAZOLE
     Dosage: ONE TABLET A DAY
  3. NORVASC [Concomitant]
     Active Substance: AMLODIPINE BESYLATE
     Dosage: ONE TABLET A DAY
  4. BISOPROLOL FUMARATE [Concomitant]
     Active Substance: BISOPROLOL FUMARATE
     Dosage: ONE TABLET A DAY

REACTIONS (7)
  - Dehydration [Recovered/Resolved]
  - Cerebral infarction [Recovered/Resolved with Sequelae]
  - Hemiplegia [Not Recovered/Not Resolved]
  - Genital haemorrhage [Recovered/Resolved]
  - Genital haemorrhage [Recovering/Resolving]
  - Blood loss anaemia [Unknown]
  - Altered state of consciousness [Recovered/Resolved with Sequelae]

NARRATIVE: CASE EVENT DATE: 20210101
